FAERS Safety Report 6208128-0 (Version None)
Quarter: 2009Q2

REPORT INFORMATION
  Report Type: 
  Country: None (occurrence: None)
  Receive Date: 20090529
  Receipt Date: 20090517
  Transmission Date: 20091009
  Serious: Yes (Hospitalization, Other)
  Sender: FDA-Public Use
  Company Number: US-ROCHE-611347

PATIENT
  Age: 58 Year
  Sex: Male

DRUGS (8)
  1. PEG-INTERFERON ALFA 2A (RO 25-8310) [Suspect]
     Indication: HEPATITIS C
     Route: 058
     Dates: start: 20081023, end: 20090107
  2. RIBAVIRIN [Suspect]
     Indication: HEPATITIS C
     Dosage: 600MG EVERY AM AND 400 MG EVERY PM
     Route: 048
     Dates: start: 20081023, end: 20090108
  3. BLINDED VX-950 [Suspect]
     Indication: HEPATITIS C
     Dosage: DOSE BLINDED
     Route: 048
     Dates: start: 20081023, end: 20090108
  4. TRIAMCINOLONE [Concomitant]
     Route: 061
     Dates: start: 20081113
  5. CALADRYL [Concomitant]
     Indication: PRURITUS
     Route: 061
     Dates: start: 20081024
  6. TYLENOL W/ CODEINE NO. 4 [Concomitant]
     Indication: BACK PAIN
     Route: 048
     Dates: start: 20050101
  7. SOMA [Concomitant]
     Indication: BACK PAIN
     Route: 048
     Dates: start: 20050101
  8. HYZAAR [Concomitant]
     Indication: HYPERTENSION
     Route: 048
     Dates: start: 20030101

REACTIONS (4)
  - ANAEMIA [None]
  - PYELONEPHRITIS [None]
  - PYREXIA [None]
  - RENAL FAILURE ACUTE [None]
